FAERS Safety Report 5845521-X (Version None)
Quarter: 2008Q3

REPORT INFORMATION
  Report Type: 
  Country: None (occurrence: None)
  Receive Date: 20080731
  Receipt Date: 20080409
  Transmission Date: 20090109
  Serious: No
  Sender: FDA-Public Use
  Company Number: US200804002875

PATIENT
  Age: 45 Year
  Sex: Female
  Weight: 145.1 kg

DRUGS (4)
  1. BYETTA [Suspect]
     Indication: GLUCOSE TOLERANCE IMPAIRED
     Dosage: 5 UG, 2/D, SUBCUTANEOUS
     Route: 058
     Dates: start: 20080301, end: 20080408
  2. EXENATIDE 5MCG PEN, DISPOSABLE DEVICE (EXENATIDE 5MCG)) PEN,DISPOSABLE [Concomitant]
  3. LIPITOR [Concomitant]
  4. ENALAPRIL MALEATE [Concomitant]

REACTIONS (3)
  - HEADACHE [None]
  - PALPITATIONS [None]
  - REFLUX OESOPHAGITIS [None]
